FAERS Safety Report 9238127 (Version 1)
Quarter: 2013Q1

REPORT INFORMATION
  Report Type: Spontaneous
  Country: US (occurrence: None)
  Receive Date: 20121106
  Receipt Date: 20121106
  Transmission Date: 20140127
  Serious: No
  Sender: FDA-Public Use
  Company Number: 1000037814

PATIENT
  Age: 69 Year
  Sex: Male

DRUGS (9)
  1. DALIRESP [Suspect]
     Indication: CHRONIC OBSTRUCTIVE PULMONARY DISEASE
     Dosage: 500 MCG, (500 MCG, 1 IN 1
     Dates: start: 201204
  2. REMERON (MIRTAZAPINE) (MIRTAZAPINE) (MIRTAZAPINE) [Concomitant]
  3. DOXEPIN (DOXEPIN) (DOXEPIN) [Concomitant]
  4. LEXAPRO (ESCITALOPRAM)(ESCITALOPRAM) [Concomitant]
  5. SPIRIVA (TIOTROPIUM BROMIDE) (TIOTROPIUM BROMIDE) [Concomitant]
  6. ADVAIR (FLUTICASONE) (FLUTICASONE) [Concomitant]
  7. OMEPRAZOLE (OMEPRAZOLE) (OMEPRAZOLE) [Concomitant]
  8. FUROSEMIDE [Concomitant]
  9. AMLODIPINE (AMLODIPINE) (AMLODIPINE) [Concomitant]

REACTIONS (6)
  - Diarrhoea [None]
  - Decreased appetite [None]
  - Weight decreased [None]
  - Insomnia [None]
  - Rash [None]
  - Pruritus [None]
